FAERS Safety Report 5368277-6 (Version None)
Quarter: 2007Q2

REPORT INFORMATION
  Report Type: 
  Country: None (occurrence: None)
  Receive Date: 20070619
  Receipt Date: 20070604
  Transmission Date: 20071010
  Serious: Yes (Other)
  Sender: FDA-Public Use
  Company Number: 2007RR-07991

PATIENT
  Age: 5 Year
  Sex: Female
  Weight: 22 kg

DRUGS (1)
  1. AMOXICILLIN [Suspect]
     Indication: LOWER RESPIRATORY TRACT INFECTION
     Dosage: ORAL
     Route: 048
     Dates: start: 20070511, end: 20070516

REACTIONS (4)
  - AGGRESSION [None]
  - EMOTIONAL DISORDER [None]
  - FATIGUE [None]
  - REACTION TO DRUG EXCIPIENTS [None]
